FAERS Safety Report 11246457 (Version 1)
Quarter: 2015Q3

REPORT INFORMATION
  Report Type: Report from Study
  Country: JP (occurrence: JP)
  Receive Date: 20150708
  Receipt Date: 20150708
  Transmission Date: 20151125
  Serious: Yes (Other)
  Sender: FDA-Public Use
  Company Number: JP-TEVA-576054USA

PATIENT
  Age: 14 Year
  Sex: Female

DRUGS (36)
  1. ZINC [Suspect]
     Active Substance: ZINC\ZINC CHLORIDE
     Dosage: 50 MILLIGRAM DAILY;
     Route: 065
     Dates: start: 20120818, end: 20131130
  2. ZINC [Suspect]
     Active Substance: ZINC\ZINC CHLORIDE
     Dosage: 50 MILLIGRAM DAILY;
     Route: 065
     Dates: start: 20100730, end: 20120115
  3. BIO-THREE [Concomitant]
     Active Substance: HERBALS
     Indication: SINUSITIS
     Route: 048
     Dates: start: 20120207, end: 20120214
  4. ZINC [Suspect]
     Active Substance: ZINC\ZINC CHLORIDE
     Indication: HEPATO-LENTICULAR DEGENERATION
     Dosage: 25 MILLIGRAM DAILY;
     Route: 065
     Dates: start: 20120501, end: 20120817
  5. TELGIN-G [Concomitant]
     Indication: PHARYNGITIS
     Dosage: .8 GRAM DAILY;
     Route: 048
     Dates: start: 20111021, end: 20111028
  6. ASTHPHYLLIN [Concomitant]
     Indication: BRONCHITIS
     Route: 048
     Dates: start: 20121220, end: 20121225
  7. PULSMARIN A [Concomitant]
     Active Substance: AMBROXOL HYDROCHLORIDE
     Indication: NASOPHARYNGITIS
     Dosage: 1.2 GRAM DAILY;
     Route: 048
     Dates: start: 20101122, end: 20101127
  8. BIO-THREE [Concomitant]
     Active Substance: HERBALS
     Indication: GASTRITIS
     Dosage: 2 GRAM DAILY;
     Route: 048
     Dates: start: 20101122, end: 20101127
  9. CLARITH [Concomitant]
     Active Substance: CLARITHROMYCIN
     Indication: NASOPHARYNGITIS
     Dosage: 3 GRAM DAILY;
     Route: 048
     Dates: start: 20110521, end: 20110526
  10. ZINC [Suspect]
     Active Substance: ZINC\ZINC CHLORIDE
     Dosage: 25 MILLIGRAM DAILY;
     Route: 065
     Dates: start: 20080617, end: 20100730
  11. MEIACT [Concomitant]
     Active Substance: CEFDITOREN PIVOXIL
     Indication: PHARYNGITIS
     Dosage: 3 GRAM DAILY;
     Route: 048
     Dates: start: 20111021, end: 20111028
  12. AMBROXOL [Concomitant]
     Active Substance: AMBROXOL
     Indication: BRONCHITIS
     Route: 048
     Dates: start: 20121220, end: 20121225
  13. ASTHPHYLLIN [Concomitant]
     Indication: ASTHMA
     Route: 048
     Dates: start: 20131205, end: 20140110
  14. TELGIN-G [Concomitant]
     Indication: NASOPHARYNGITIS
     Dosage: .5 GRAM DAILY;
     Route: 048
     Dates: start: 20101122, end: 20101127
  15. MUCODYNE [Concomitant]
     Active Substance: CARBOCYSTEINE
     Indication: NASOPHARYNGITIS
     Dosage: 1 GRAM DAILY;
     Route: 048
     Dates: start: 20110128, end: 20110202
  16. TELGIN-G [Concomitant]
     Indication: NASOPHARYNGITIS
     Dosage: .5 GRAM DAILY;
     Route: 048
     Dates: start: 20110128, end: 20110202
  17. ISOTONIC SODIUM CHLORIDE SOLUTION [Concomitant]
     Active Substance: SODIUM CHLORIDE
     Indication: NASOPHARYNGITIS
     Dosage: 10 GTT DAILY;
     Route: 045
     Dates: start: 20110128, end: 20110202
  18. MUCOTRON [Concomitant]
     Active Substance: CARBOCYSTEINE
     Indication: BRONCHITIS
     Route: 048
     Dates: start: 20121220, end: 20121225
  19. INTAL [Concomitant]
     Active Substance: CROMOLYN SODIUM
     Indication: RHINITIS ALLERGIC
     Route: 045
     Dates: start: 20130309, end: 20130420
  20. MUCOTRON [Concomitant]
     Active Substance: CARBOCYSTEINE
     Indication: NASOPHARYNGITIS
     Route: 048
     Dates: start: 20131130, end: 20131205
  21. NAUZELIN [Concomitant]
     Active Substance: DOMPERIDONE
     Indication: GASTRITIS
     Dosage: 30 MILLIGRAM DAILY;
     Route: 054
     Dates: start: 20101122, end: 20101127
  22. NASIVIN [Concomitant]
     Active Substance: OXYMETAZOLINE
     Indication: NASOPHARYNGITIS
     Dosage: 10 GTT DAILY;
     Route: 045
     Dates: start: 20110128, end: 20110202
  23. C-CYSTEN [Concomitant]
     Active Substance: CARBOCYSTEINE
     Indication: NASOPHARYNGITIS
     Dosage: 1 GRAM DAILY;
     Route: 048
     Dates: start: 20111003, end: 20111008
  24. TELGIN-G [Concomitant]
     Indication: NASOPHARYNGITIS
     Dosage: .8 GRAM DAILY;
     Route: 048
     Dates: start: 20111003, end: 20111008
  25. MUCOTRON [Concomitant]
     Active Substance: CARBOCYSTEINE
     Indication: ASTHMA
     Route: 048
     Dates: start: 20131205, end: 20140110
  26. PULSMARIN A [Concomitant]
     Active Substance: AMBROXOL HYDROCHLORIDE
     Indication: NASOPHARYNGITIS
     Dosage: 1.2 GRAM DAILY;
     Route: 048
     Dates: start: 20111003, end: 20111008
  27. CLARITH [Concomitant]
     Active Substance: CLARITHROMYCIN
     Indication: SINUSITIS
     Dosage: 300 MILLIGRAM DAILY;
     Route: 048
     Dates: start: 20120207, end: 20120214
  28. CLARITH [Concomitant]
     Active Substance: CLARITHROMYCIN
     Indication: BRONCHITIS
     Route: 048
     Dates: start: 20121220, end: 20121225
  29. SHOKENCHUTO [Concomitant]
     Indication: PRODUCT USED FOR UNKNOWN INDICATION
     Dosage: 5 GRAM DAILY;
     Route: 048
     Dates: start: 20130824, end: 20131026
  30. MUCODYNE [Concomitant]
     Active Substance: CARBOCYSTEINE
     Indication: NASOPHARYNGITIS
     Dosage: 1 GRAM DAILY;
     Route: 048
     Dates: start: 20101122, end: 20101127
  31. TULOBUTEROL [Concomitant]
     Active Substance: TULOBUTEROL
     Indication: NASOPHARYNGITIS
     Dosage: .8 GRAM DAILY;
     Route: 048
     Dates: start: 20110128, end: 20110202
  32. PULSMARIN A [Concomitant]
     Active Substance: AMBROXOL HYDROCHLORIDE
     Indication: NASOPHARYNGITIS
     Dosage: 1.2 GRAM DAILY;
     Route: 048
     Dates: start: 20110128, end: 20110202
  33. PULSMARIN A [Concomitant]
     Active Substance: AMBROXOL HYDROCHLORIDE
     Indication: PHARYNGITIS
     Dosage: 1.2 GRAM DAILY;
     Route: 048
     Dates: start: 20111021, end: 20111028
  34. LYSOZYME [Concomitant]
     Active Substance: LYSOZYME
     Indication: PHARYNGITIS
     Dosage: 1 GRAM DAILY;
     Route: 048
     Dates: start: 20111021, end: 20111028
  35. KIKYOTO [Concomitant]
     Indication: NASOPHARYNGITIS
     Dosage: 5 GRAM DAILY;
     Route: 048
     Dates: start: 20131130, end: 20131205
  36. C-CYSTEN [Concomitant]
     Active Substance: CARBOCYSTEINE
     Indication: PHARYNGITIS
     Dosage: 1 GRAM DAILY;
     Route: 048
     Dates: start: 20111021, end: 20111028

REACTIONS (2)
  - Scoliosis [Not Recovered/Not Resolved]
  - Decreased appetite [Unknown]

NARRATIVE: CASE EVENT DATE: 20120501
